FAERS Safety Report 15331202 (Version 1)
Quarter: 2018Q3

REPORT INFORMATION
  Report Type: Spontaneous
  Country: IE (occurrence: IE)
  Receive Date: 20180829
  Receipt Date: 20180829
  Transmission Date: 20181010
  Serious: Yes (Death)
  Sender: FDA-Public Use
  Company Number: IE-TEVA-2018-IE-949753

PATIENT
  Age: 74 Year
  Sex: Female

DRUGS (6)
  1. QUETIAPINE FUMARATE. [Suspect]
     Active Substance: QUETIAPINE FUMARATE
     Dosage: UNK
     Route: 048
  2. ALCOHOL. [Interacting]
     Active Substance: ALCOHOL
     Dosage: UNK
     Route: 065
  3. XANAX [Interacting]
     Active Substance: ALPRAZOLAM
     Route: 065
  4. MIRTAZAPINE. [Interacting]
     Active Substance: MIRTAZAPINE
     Dosage: UNK
     Route: 048
  5. XANAX [Interacting]
     Active Substance: ALPRAZOLAM
     Dosage: UNK
     Route: 065
  6. LYRICA [Interacting]
     Active Substance: PREGABALIN
     Dosage: UNK
     Route: 065

REACTIONS (1)
  - Alcohol interaction [Fatal]

NARRATIVE: CASE EVENT DATE: 20161209
